FAERS Safety Report 6645819-1 (Version None)
Quarter: 2010Q1

REPORT INFORMATION
  Report Type: 
  Country: None (occurrence: None)
  Receive Date: 20100323
  Receipt Date: 20100315
  Transmission Date: 20100710
  Serious: Yes (Hospitalization)
  Sender: FDA-Public Use
  Company Number: FR-ASTRAZENECA-2010SE12003

PATIENT
  Age: 88 Year
  Sex: Female

DRUGS (5)
  1. TENORMIN [Suspect]
     Indication: HYPERTENSION
     Route: 048
     Dates: end: 20100201
  2. TENORMIN [Interacting]
     Route: 048
  3. ARICEPT [Interacting]
     Indication: DEMENTIA
     Route: 048
     Dates: start: 20100124, end: 20100224
  4. ELISOR [Concomitant]
     Route: 048
  5. LEVOTHYROX [Concomitant]
     Indication: HYPOTHYROIDISM
     Route: 048
     Dates: start: 20091201

REACTIONS (2)
  - CONVULSION [None]
  - DRUG INTERACTION [None]
